FAERS Safety Report 9658086 (Version 1)
Quarter: 2013Q4

REPORT INFORMATION
  Report Type: Spontaneous
  Country: AU (occurrence: AU)
  Receive Date: 20131030
  Receipt Date: 20131030
  Transmission Date: 20140711
  Serious: Yes (Other)
  Sender: FDA-Public Use
  Company Number: PHHY2013AU119988

PATIENT
  Age: 67 Year
  Sex: Male

DRUGS (4)
  1. SLOW K [Suspect]
  2. FUROSEMIDE [Suspect]
  3. RIVAROXABAN [Suspect]
  4. TRACLEER//BOSENTAN MONOHYDRATE [Suspect]

REACTIONS (2)
  - Atrial flutter [Unknown]
  - Dyspnoea [Unknown]
